FAERS Safety Report 20111846 (Version 2)
Quarter: 2021Q4

REPORT INFORMATION
  Report Type: Spontaneous
  Country: US (occurrence: US)
  Receive Date: 20211125
  Receipt Date: 20211229
  Transmission Date: 20220303
  Serious: No
  Sender: FDA-Public Use
  Company Number: US-Shilpa Medicare Limited-SML-US-2021-01291

PATIENT

DRUGS (1)
  1. AZACITIDINE [Suspect]
     Active Substance: AZACITIDINE
     Indication: Product used for unknown indication
     Dosage: 100 MG/VIAL
     Route: 065

REACTIONS (5)
  - No adverse event [Unknown]
  - Product preparation issue [Unknown]
  - Product colour issue [Unknown]
  - Product reconstitution quality issue [Unknown]
  - Product administration interrupted [Unknown]
